FAERS Safety Report 17425685 (Version 1)
Quarter: 2020Q1

REPORT INFORMATION
  Report Type: Spontaneous
  Country: US (occurrence: US)
  Receive Date: 20200218
  Receipt Date: 20200218
  Transmission Date: 20200409
  Serious: No
  Sender: FDA-Public Use
  Company Number: NVSC2020US044186

PATIENT
  Age: 61 Year
  Sex: Female

DRUGS (1)
  1. NILOTINIB [Suspect]
     Active Substance: NILOTINIB
     Indication: CHRONIC MYELOID LEUKAEMIA
     Dosage: 300 MG
     Route: 065

REACTIONS (4)
  - Rash [Unknown]
  - Swelling [Unknown]
  - Eye swelling [Unknown]
  - Drug intolerance [Unknown]
